FAERS Safety Report 14754669 (Version 1)
Quarter: 2018Q2

REPORT INFORMATION
  Report Type: Spontaneous
  Country: JP (occurrence: JP)
  Receive Date: 20180413
  Receipt Date: 20180413
  Transmission Date: 20180711
  Serious: Yes (Other)
  Sender: FDA-Public Use
  Company Number: JP-ROCHE-2103100

PATIENT
  Age: 78 Year
  Sex: Male

DRUGS (2)
  1. LUCENTIS [Suspect]
     Active Substance: RANIBIZUMAB
     Indication: MACULAR DEGENERATION
     Dosage: UNK
     Route: 031
  2. VERTEPORFIN [Suspect]
     Active Substance: VERTEPORFIN
     Indication: MACULAR DEGENERATION
     Dosage: UNK
     Route: 042

REACTIONS (1)
  - Macular degeneration [Unknown]
